FAERS Safety Report 23817011 (Version 1)
Quarter: 2024Q2

REPORT INFORMATION
  Report Type: Spontaneous
  Country: NL (occurrence: NL)
  Receive Date: 20240504
  Receipt Date: 20240504
  Transmission Date: 20240715
  Serious: Yes (Hospitalization)
  Sender: FDA-Public Use
  Company Number: None

PATIENT
  Age: 68 Year
  Sex: Male
  Weight: 69 kg

DRUGS (3)
  1. CAPECITABINE [Suspect]
     Active Substance: CAPECITABINE
     Indication: Oesophageal cancer metastatic
     Dosage: 2DD, BRAND NAME NOT SPECIFIED
     Route: 065
     Dates: start: 20240222, end: 20240319
  2. OXALIPLATIN [Suspect]
     Active Substance: OXALIPLATIN
     Indication: Oesophageal cancer metastatic
     Dosage: DAY 1 OF CYCLE 1 TO CYCLE 6,  BRAND NAME NOT SPECIFIED
     Route: 065
     Dates: start: 20240222
  3. NIVOLUMAB [Suspect]
     Active Substance: NIVOLUMAB
     Indication: Oesophageal cancer metastatic
     Dosage: DAY 1 OF EACH CYCLE, INFUUS / BRAND NAME NOT SPECIFIED
     Route: 065
     Dates: start: 20240222

REACTIONS (3)
  - Diarrhoea [Not Recovered/Not Resolved]
  - Vomiting [Not Recovered/Not Resolved]
  - Nausea [Not Recovered/Not Resolved]
